FAERS Safety Report 15953607 (Version 3)
Quarter: 2019Q3

REPORT INFORMATION
  Report Type: Report from Study
  Country: None (occurrence: CH)
  Receive Date: 20190213
  Receipt Date: 20190803
  Transmission Date: 20191004
  Serious: Yes (Hospitalization)
  Sender: FDA-Public Use
  Company Number: CH-ABBVIE-19S-151-2660463-00

PATIENT
  Sex: Female

DRUGS (3)
  1. DUODOPA [Suspect]
     Active Substance: CARBIDOPA\LEVODOPA
     Route: 050
  2. DUODOPA [Suspect]
     Active Substance: CARBIDOPA\LEVODOPA
     Indication: PARKINSON^S DISEASE
     Dosage: 16H THERAPY
     Route: 050
     Dates: start: 20181024, end: 20181227
  3. DUODOPA [Suspect]
     Active Substance: CARBIDOPA\LEVODOPA
     Dosage: MD 7 ML CRD 5.8 ML/H ED: 1 ML ED BLOCKING TIME: 1H 16H THERAPY
     Route: 050
     Dates: start: 20181227

REACTIONS (5)
  - Rib fracture [Recovered/Resolved]
  - Fall [Not Recovered/Not Resolved]
  - Speech disorder [Recovering/Resolving]
  - Balance disorder [Unknown]
  - Fall [Recovered/Resolved]

NARRATIVE: CASE EVENT DATE: 2019
